FAERS Safety Report 18116826 (Version 1)
Quarter: 2020Q3

REPORT INFORMATION
  Report Type: Spontaneous
  Country: CZ (occurrence: CZ)
  Receive Date: 20200805
  Receipt Date: 20200805
  Transmission Date: 20201103
  Serious: Yes (Hospitalization)
  Sender: FDA-Public Use
  Company Number: CZ-ALLERGAN-2029009US

PATIENT
  Sex: Female

DRUGS (1)
  1. LEVONORGESTREL ? BP [Suspect]
     Active Substance: LEVONORGESTREL
     Indication: CONTRACEPTION
     Dosage: 52MG, AT AN INITIAL RELEASE RATE OF 20 MICROGRAMS/24 HOURS
     Route: 015
     Dates: start: 20160225

REACTIONS (2)
  - Ovarian cyst ruptured [Unknown]
  - Abdominal pain [Unknown]

NARRATIVE: CASE EVENT DATE: 20160120
